FAERS Safety Report 12227230 (Version 2)
Quarter: 2016Q2

REPORT INFORMATION
  Report Type: Report from Study
  Country: GB (occurrence: GB)
  Receive Date: 20160331
  Receipt Date: 20160420
  Transmission Date: 20160815
  Serious: Yes (Other)
  Sender: FDA-Public Use
  Company Number: GB-REGENERON PHARMACEUTICALS, INC.-2016-14808

PATIENT

DRUGS (4)
  1. EYLEA [Suspect]
     Active Substance: AFLIBERCEPT
     Dosage: UNK, LAST DOSE PRIOR EVENT
     Dates: start: 20151014, end: 20151014
  2. BLINDED LASER [Suspect]
     Active Substance: DEVICE
     Dosage: UNK, LAST DOSE PRIOR EVENT
     Dates: start: 20151014, end: 20151014
  3. BLINDED LASER [Suspect]
     Active Substance: DEVICE
     Indication: DIABETIC RETINOPATHY
     Dosage: UNK
     Dates: start: 20150617
  4. EYLEA [Suspect]
     Active Substance: AFLIBERCEPT
     Indication: DIABETIC RETINOPATHY
     Dosage: UNK
     Dates: start: 20150617

REACTIONS (1)
  - Respiratory failure [Not Recovered/Not Resolved]

NARRATIVE: CASE EVENT DATE: 20151108
